FAERS Safety Report 10996386 (Version 1)
Quarter: 2015Q2

REPORT INFORMATION
  Report Type: Spontaneous
  Country: US (occurrence: US)
  Receive Date: 20150408
  Receipt Date: 20150408
  Transmission Date: 20150821
  Serious: No
  Sender: FDA-Public Use
  Company Number: US-009507513-1503USA015214

PATIENT
  Age: 32 Year
  Sex: Female
  Weight: 94.33 kg

DRUGS (1)
  1. NEXPLANON [Suspect]
     Active Substance: ETONOGESTREL
     Dosage: LEFT ARM , EVERY 3 YEARS, 1 ROD
     Route: 059
     Dates: start: 20130530

REACTIONS (2)
  - Dizziness [Unknown]
  - Weight increased [Unknown]
